FAERS Safety Report 10418598 (Version 1)
Quarter: 2014Q3

REPORT INFORMATION
  Report Type: Spontaneous
  Country: JP (occurrence: None)
  Receive Date: 20140827
  Receipt Date: 20140827
  Transmission Date: 20150326
  Serious: Yes (Hospitalization)
  Sender: FDA-Public Use
  Company Number: 2014HINLIT0729

PATIENT
  Age: 29 Year
  Sex: Female

DRUGS (4)
  1. LAMIVUDINE (LAMIVUDINE) UNKNOWN [Suspect]
     Active Substance: LAMIVUDINE
     Indication: HIV INFECTION
  2. EFAVIRENZ [Concomitant]
     Active Substance: EFAVIRENZ
  3. STAVUDINE. [Concomitant]
     Active Substance: STAVUDINE
  4. TENOFOVIR [Concomitant]
     Active Substance: TENOFOVIR

REACTIONS (2)
  - Microcytic anaemia [None]
  - Pancytopenia [None]
